FAERS Safety Report 4680938-0 (Version None)
Quarter: 2005Q2

REPORT INFORMATION
  Report Type: 
  Country: None (occurrence: None)
  Receive Date: 20050601
  Receipt Date: 20050601
  Transmission Date: 20051028
  Serious: No
  Sender: FDA-Public Use
  Company Number: None

PATIENT
  Sex: Female
  Weight: 105.5 kg

DRUGS (2)
  1. CISPLATIN [Suspect]
     Indication: NEOPLASM MALIGNANT
     Dosage: 100 MG/M2 ON DAYS 1 AND 22
     Dates: start: 20050414
  2. RADIATION [Suspect]
     Dosage: ARM#2 ACCELERATED FRACTIONATION BY CONCOMITANT BOOST (AFX-CB) 72 GY/42 FX FOR 6 WEEKS PLUS CISPLATIN

REACTIONS (7)
  - DEHYDRATION [None]
  - NAUSEA [None]
  - PYREXIA [None]
  - RADIATION MUCOSITIS [None]
  - STOMATITIS [None]
  - SUPERINFECTION [None]
  - VOMITING [None]
